FAERS Safety Report 5165427-1 (Version None)
Quarter: 2006Q4

REPORT INFORMATION
  Report Type: 
  Country: None (occurrence: None)
  Receive Date: 20061206
  Receipt Date: 20060906
  Transmission Date: 20070319
  Serious: Yes (Hospitalization)
  Sender: FDA-Public Use
  Company Number: US-AVENTIS-200614709EU

PATIENT
  Age: 54 Year
  Sex: Male
  Weight: 108.5 kg

DRUGS (2)
  1. LASIX [Suspect]
     Indication: OEDEMA PERIPHERAL
     Route: 048
     Dates: start: 20030601
  2. CODE UNBROKEN [Suspect]
     Indication: INTESTINAL FUNCTIONAL DISORDER
     Route: 048
     Dates: start: 20051229

REACTIONS (13)
  - ANXIETY [None]
  - BACK PAIN [None]
  - DEHYDRATION [None]
  - ELECTROCARDIOGRAM QT PROLONGED [None]
  - HYPERTENSION [None]
  - HYPOKALAEMIA [None]
  - PALPITATIONS [None]
  - SINUS BRADYCARDIA [None]
  - STRESS [None]
  - VENOUS INSUFFICIENCY [None]
  - VENTRICULAR EXTRASYSTOLES [None]
  - VENTRICULAR HYPERTROPHY [None]
  - VENTRICULAR TACHYCARDIA [None]
